FAERS Safety Report 19497652 (Version 12)
Quarter: 2025Q1

REPORT INFORMATION
  Report Type: Spontaneous
  Country: US (occurrence: US)
  Receive Date: 20210706
  Receipt Date: 20250327
  Transmission Date: 20250409
  Serious: Yes (Hospitalization)
  Sender: PFIZER
  Company Number: US-PFIZER INC-2021399338

PATIENT
  Age: 82 Year
  Sex: Female
  Weight: 58.957 kg

DRUGS (3)
  1. PREMARIN [Suspect]
     Active Substance: ESTROGENS, CONJUGATED
     Indication: Hormone replacement therapy
     Dosage: UNK, 1X/DAY (0.3 1 X DAY)
     Dates: start: 197403
  2. PREMARIN [Suspect]
     Active Substance: ESTROGENS, CONJUGATED
     Dates: start: 202101
  3. PREMARIN [Suspect]
     Active Substance: ESTROGENS, CONJUGATED
     Dates: start: 1978

REACTIONS (3)
  - Gastrointestinal disorder [Unknown]
  - Malaise [Unknown]
  - Cerebral disorder [Unknown]
